FAERS Safety Report 7333471-1 (Version None)
Quarter: 2011Q1

REPORT INFORMATION
  Report Type: 
  Country: None (occurrence: None)
  Receive Date: 20110304
  Receipt Date: 20110218
  Transmission Date: 20110831
  Serious: Yes (Other)
  Sender: FDA-Public Use
  Company Number: US-CELGENEUS-163-21880-11011948

PATIENT
  Sex: Female

DRUGS (6)
  1. ZOMETA [Concomitant]
     Indication: BONE DISORDER
     Route: 065
  2. REVLIMID [Suspect]
     Dosage: 15 MILLIGRAM
     Route: 048
  3. VELCADE [Concomitant]
     Route: 065
     Dates: start: 20100201
  4. AREDIA [Concomitant]
     Route: 065
     Dates: start: 20100101
  5. AREDIA [Concomitant]
     Route: 065
     Dates: start: 20110101
  6. REVLIMID [Suspect]
     Indication: MULTIPLE MYELOMA
     Dosage: 15 MILLIGRAM
     Route: 048
     Dates: start: 20101210

REACTIONS (1)
  - BLOOD CALCIUM INCREASED [None]
